FAERS Safety Report 6663262-6 (Version None)
Quarter: 2010Q1

REPORT INFORMATION
  Report Type: 
  Country: None (occurrence: None)
  Receive Date: 20100331
  Receipt Date: 20100331
  Transmission Date: 20100710
  Serious: Yes (Hospitalization)
  Sender: FDA-Public Use
  Company Number: None

PATIENT
  Sex: Female
  Weight: 62.72 kg

DRUGS (2)
  1. HERCEPTIN [Suspect]
     Dosage: 375 MG
     Dates: end: 20100311
  2. TAXOL [Suspect]
     Dosage: 405 MG
     Dates: end: 20100311

REACTIONS (6)
  - CARDIAC FAILURE CONGESTIVE [None]
  - CARDIOMYOPATHY [None]
  - HEART RATE INCREASED [None]
  - LEFT VENTRICULAR DYSFUNCTION [None]
  - MITRAL VALVE INCOMPETENCE [None]
  - TACHYCARDIA [None]
